FAERS Safety Report 4857369-3 (Version None)
Quarter: 2005Q4

REPORT INFORMATION
  Report Type: 
  Country: None (occurrence: None)
  Receive Date: 20051219
  Receipt Date: 20050228
  Transmission Date: 20060501
  Serious: No
  Sender: FDA-Public Use
  Company Number: US-GLAXOSMITHKLINE-A0547509A

PATIENT
  Age: 50 Year
  Sex: Female

DRUGS (2)
  1. NICODERM CQ [Suspect]
     Dates: start: 20050226
  2. LEXAPRO [Concomitant]

REACTIONS (4)
  - INSOMNIA [None]
  - NERVOUSNESS [None]
  - NICOTINE DEPENDENCE [None]
  - TREMOR [None]
